FAERS Safety Report 8342284 (Version 4)
Quarter: 2012Q4

REPORT INFORMATION
  Report Type: 
  Country: JP (occurrence: JP)
  Receive Date: 20120118
  Receipt Date: 20120915
  Transmission Date: 20130627
  Serious: Yes (Hospitalization)
  Sender: FDA-Public Use
  Company Number: JP-ABBOTT-11P-087-0873564-00

PATIENT
  Age: 57 Year
  Sex: Female
  Weight: 44 kg

DRUGS (8)
  1. KLARICID [Suspect]
     Indication: HELICOBACTER INFECTION
     Route: 048
     Dates: start: 20110928, end: 20111004
  2. TAKEPRON [Suspect]
     Indication: HELICOBACTER INFECTION
     Route: 048
     Dates: start: 20110928, end: 20111004
  3. PASETOCIN [Suspect]
     Indication: HELICOBACTER INFECTION
     Route: 048
     Dates: start: 20110928, end: 20111004
  4. BENZABLOCK L [Suspect]
     Indication: NASOPHARYNGITIS
     Route: 048
     Dates: start: 20111007, end: 20111007
  5. IRBETAN [Concomitant]
     Indication: HYPERTENSION
     Route: 048
     Dates: start: 20111006, end: 20111006
  6. IRBETAN [Concomitant]
     Dates: start: 2009
  7. ANTIBIOTICS-RESISTANT LACTIC ACID BACTERIAE [Concomitant]
     Indication: DISBACTERIOSIS
     Route: 048
     Dates: start: 20110928, end: 20111004
  8. LANSOPRAZOLE [Concomitant]
     Indication: HELICOBACTER INFECTION

REACTIONS (7)
  - Oral mucosal erythema [Unknown]
  - Stevens-Johnson syndrome [Recovered/Resolved]
  - Ocular hyperaemia [Recovered/Resolved]
  - Headache [Unknown]
  - Pyrexia [Unknown]
  - Oropharyngeal pain [Unknown]
  - Oral pain [Recovered/Resolved]
